FAERS Safety Report 9070719 (Version 4)
Quarter: 2013Q3

REPORT INFORMATION
  Report Type: Report from Study
  Country: US (occurrence: US)
  Receive Date: 20130129
  Receipt Date: 20130805
  Transmission Date: 20140515
  Serious: Yes (Hospitalization)
  Sender: FDA-Public Use
  Company Number: US-JNJFOC-20130111138

PATIENT
  Age: 45 Year
  Sex: Female
  Weight: 106.6 kg

DRUGS (12)
  1. REMICADE [Suspect]
     Indication: CROHN^S DISEASE
     Dosage: 6 VIALS
     Route: 042
     Dates: start: 20120705
  2. REMICADE [Suspect]
     Indication: CROHN^S DISEASE
     Dosage: POSSIBLY 6 VIALS
     Route: 042
     Dates: start: 20121224, end: 20121224
  3. EFFEXOR [Concomitant]
     Indication: DEPRESSION
     Dosage: 300MG CAPSULE??START/STOP DTE 5-90
     Route: 048
     Dates: start: 199005
  4. GEODON [Concomitant]
     Indication: DEPRESSION
     Dosage: 80MG??START/STOP DATE 7-12
     Route: 048
     Dates: start: 2011
  5. GEODON [Concomitant]
     Indication: DEPRESSION
     Route: 048
     Dates: start: 201207
  6. CLONAZEPAM [Concomitant]
     Indication: PANIC ATTACK
     Route: 048
     Dates: start: 199005
  7. CLONAZEPAM [Concomitant]
     Indication: ANXIETY
     Route: 048
     Dates: start: 199005
  8. BENADRYL [Concomitant]
     Indication: PREMEDICATION
     Route: 065
     Dates: start: 2012
  9. RANITIDINE [Concomitant]
     Indication: PREMEDICATION
     Route: 065
     Dates: start: 2012
  10. TYLENOL [Concomitant]
     Indication: PREMEDICATION
     Dosage: 2 TABLETS
     Route: 065
     Dates: start: 2012
  11. PHENERGAN [Concomitant]
     Indication: NAUSEA
     Dosage: START/STOP DATE 5-90
     Route: 065
     Dates: start: 199005
  12. UNKNOWN MEDICATION [Concomitant]
     Indication: EAR PAIN
     Route: 065
     Dates: start: 199105

REACTIONS (26)
  - Blood pressure decreased [Recovered/Resolved]
  - Loss of consciousness [Unknown]
  - Rectal haemorrhage [Not Recovered/Not Resolved]
  - Staphylococcal infection [Unknown]
  - Lymphadenopathy [Not Recovered/Not Resolved]
  - Infusion related reaction [Recovered/Resolved]
  - Epistaxis [Not Recovered/Not Resolved]
  - Skin haemorrhage [Not Recovered/Not Resolved]
  - Muscle atrophy [Not Recovered/Not Resolved]
  - Tremor [Not Recovered/Not Resolved]
  - Muscular weakness [Not Recovered/Not Resolved]
  - Flank pain [Not Recovered/Not Resolved]
  - Myalgia [Not Recovered/Not Resolved]
  - Diarrhoea [Not Recovered/Not Resolved]
  - Hyperhidrosis [Not Recovered/Not Resolved]
  - Influenza like illness [Not Recovered/Not Resolved]
  - Nasopharyngitis [Not Recovered/Not Resolved]
  - Retching [Not Recovered/Not Resolved]
  - Dysphagia [Not Recovered/Not Resolved]
  - Nausea [Not Recovered/Not Resolved]
  - Cough [Not Recovered/Not Resolved]
  - Skin disorder [Not Recovered/Not Resolved]
  - Tremor [Recovered/Resolved]
  - Arthralgia [Unknown]
  - Dyspnoea [Recovered/Resolved]
  - Skin haemorrhage [Unknown]
